FAERS Safety Report 4984813-3 (Version None)
Quarter: 2006Q2

REPORT INFORMATION
  Report Type: 
  Country: None (occurrence: None)
  Receive Date: 20060427
  Receipt Date: 20060323
  Transmission Date: 20061013
  Serious: Yes (Other)
  Sender: FDA-Public Use
  Company Number: 2006AP01451

PATIENT
  Age: 26 Year
  Sex: Female

DRUGS (3)
  1. OMEPRAL [Suspect]
     Indication: GASTRITIS
     Route: 048
     Dates: start: 20060202, end: 20060321
  2. LAXOSELIN [Concomitant]
     Indication: CONSTIPATION
     Route: 048
     Dates: start: 20051226
  3. SELBEX [Concomitant]
     Indication: GASTRITIS
     Dates: start: 20060118, end: 20060130

REACTIONS (1)
  - HYPERPROLACTINAEMIA [None]
